FAERS Safety Report 5721328-9 (Version None)
Quarter: 2008Q2

REPORT INFORMATION
  Report Type: 
  Country: None (occurrence: None)
  Receive Date: 20080428
  Receipt Date: 20080428
  Transmission Date: 20081010
  Serious: Yes (Life-Threatening)
  Sender: FDA-Public Use
  Company Number: None

PATIENT
  Age: 88 Year
  Sex: Male

DRUGS (3)
  1. BIVALRUDIN [Suspect]
     Indication: ANTICOAGULANT THERAPY
  2. MIDAZOLAM HCL [Suspect]
  3. CONTRACT MEDIA [Concomitant]

REACTIONS (7)
  - COUGH [None]
  - DRUG HYPERSENSITIVITY [None]
  - HYPOTENSION [None]
  - HYPOXIA [None]
  - PRURITUS [None]
  - RASH [None]
  - WHEEZING [None]
